FAERS Safety Report 23923637 (Version 1)
Quarter: 2024Q2

REPORT INFORMATION
  Report Type: Spontaneous
  Country: ZA (occurrence: ZA)
  Receive Date: 20240531
  Receipt Date: 20240531
  Transmission Date: 20240716
  Serious: Yes (Other)
  Sender: FDA-Public Use
  Company Number: ZA-GLENMARK PHARMACEUTICALS-2024GMK090961

PATIENT

DRUGS (1)
  1. POTASSIUM HYDROXIDE [Suspect]
     Active Substance: POTASSIUM HYDROXIDE
     Indication: Molluscum contagiosum
     Dosage: UNK
     Route: 061
     Dates: start: 20240516, end: 20240516

REACTIONS (2)
  - Application site pain [Unknown]
  - Application site burn [Unknown]

NARRATIVE: CASE EVENT DATE: 20240516
